FAERS Safety Report 7082182-9 (Version None)
Quarter: 2010Q4

REPORT INFORMATION
  Report Type: 
  Country: None (occurrence: None)
  Receive Date: 20101103
  Receipt Date: 20101028
  Transmission Date: 20110411
  Serious: Yes (Hospitalization)
  Sender: FDA-Public Use
  Company Number: US-AMGEN-USASP2010002181

PATIENT

DRUGS (2)
  1. ARANESP [Suspect]
     Indication: DIALYSIS
     Dosage: UNK
  2. PROCRIT [Suspect]
     Indication: DIALYSIS
     Dosage: UNK

REACTIONS (5)
  - ABDOMINAL DISCOMFORT [None]
  - HOSPITALISATION [None]
  - HYPERSENSITIVITY [None]
  - INFLUENZA [None]
  - PYREXIA [None]
